FAERS Safety Report 7820470-6 (Version None)
Quarter: 2011Q4

REPORT INFORMATION
  Report Type: 
  Country: None (occurrence: None)
  Receive Date: 20111018
  Receipt Date: 20111004
  Transmission Date: 20120403
  Serious: Yes (Hospitalization)
  Sender: FDA-Public Use
  Company Number: DE-MYLANLABS-2011S1020720

PATIENT
  Age: 53 Year
  Sex: Female
  Weight: 60 kg

DRUGS (2)
  1. OXAZEPAM [Suspect]
     Route: 048
  2. AMITRIPTYLINE HCL [Suspect]
     Route: 048

REACTIONS (2)
  - SOMNOLENCE [None]
  - DRUG ABUSE [None]
